FAERS Safety Report 4620257-1 (Version None)
Quarter: 2005Q1

REPORT INFORMATION
  Report Type: 
  Country: None (occurrence: None)
  Receive Date: 20050323
  Receipt Date: 20050316
  Transmission Date: 20050727
  Serious: Yes (Hospitalization)
  Sender: FDA-Public Use
  Company Number: 10517

PATIENT
  Age: 44 Year
  Sex: Female
  Weight: 81.6475 kg

DRUGS (5)
  1. MORPHINE [Suspect]
     Indication: INTERVERTEBRAL DISC DISPLACEMENT
     Dosage: 110 MG Q1HR IV
     Route: 042
     Dates: start: 20050225, end: 20050225
  2. ZOCOR [Concomitant]
  3. HYDROCHLOROTHIAZIDE [Concomitant]
  4. FIBERCON [Concomitant]
  5. MINERAL OIL [Concomitant]

REACTIONS (3)
  - ACCIDENTAL EXPOSURE [None]
  - FEELING ABNORMAL [None]
  - SOMNOLENCE [None]
